FAERS Safety Report 6443149-4 (Version None)
Quarter: 2009Q4

REPORT INFORMATION
  Report Type: 
  Country: None (occurrence: None)
  Receive Date: 20091117
  Receipt Date: 20091112
  Transmission Date: 20100525
  Serious: Yes (Death, Hospitalization)
  Sender: FDA-Public Use
  Company Number: A0817252A

PATIENT
  Sex: Female
  Weight: 8 kg

DRUGS (2)
  1. FLIXOTIDE [Suspect]
     Indication: ASTHMA
     Dosage: 1PUFF TWICE PER DAY
     Route: 055
     Dates: start: 20090901, end: 20091107
  2. ANTI-ALLERGIC DRUG [Concomitant]

REACTIONS (3)
  - CONVULSION [None]
  - PNEUMONIA [None]
  - PYREXIA [None]
